FAERS Safety Report 14508583 (Version 2)
Quarter: 2018Q1

REPORT INFORMATION
  Report Type: Spontaneous
  Country: US (occurrence: US)
  Receive Date: 20180209
  Receipt Date: 20180223
  Transmission Date: 20180509
  Serious: Yes (Death, Other)
  Sender: FDA-Public Use
  Company Number: US-JNJFOC-20180133994

PATIENT
  Age: 70 Year
  Sex: Male
  Weight: 77.57 kg

DRUGS (3)
  1. XARELTO [Suspect]
     Active Substance: RIVAROXABAN
     Indication: CEREBROVASCULAR ACCIDENT PROPHYLAXIS
     Route: 048
     Dates: start: 20160118, end: 20160129
  2. XARELTO [Suspect]
     Active Substance: RIVAROXABAN
     Indication: ATRIAL FIBRILLATION
     Route: 048
     Dates: start: 20160118, end: 20160129
  3. XARELTO [Suspect]
     Active Substance: RIVAROXABAN
     Indication: THROMBOSIS PROPHYLAXIS
     Route: 048
     Dates: start: 20160118, end: 20160129

REACTIONS (4)
  - Hypertensive heart disease [Fatal]
  - Thoracic haemorrhage [Unknown]
  - Haemorrhagic stroke [Fatal]
  - Contusion [Unknown]

NARRATIVE: CASE EVENT DATE: 201601
